FAERS Safety Report 5904709-X (Version None)
Quarter: 2008Q3

REPORT INFORMATION
  Report Type: 
  Country: None (occurrence: None)
  Receive Date: 20080909
  Receipt Date: 20080418
  Transmission Date: 20090109
  Serious: Yes (Hospitalization)
  Sender: FDA-Public Use
  Company Number: 163-20785-08031228

PATIENT
  Age: 63 Year
  Sex: Male
  Weight: 106.3 kg

DRUGS (32)
  1. THALOMID [Suspect]
     Indication: MULTIPLE MYELOMA
     Dosage: 50 MG, QOD, ORAL ; 200 MG, DAILY, ORAL
     Route: 048
     Dates: end: 20080213
  2. THALOMID [Suspect]
     Indication: MULTIPLE MYELOMA
     Dosage: 50 MG, QOD, ORAL ; 200 MG, DAILY, ORAL
     Route: 048
     Dates: start: 20041228
  3. DEXAMETHASONE TAB [Suspect]
     Indication: MULTIPLE MYELOMA
     Dosage: 12 MG, ORAL ; 40 MG, ORAL
     Route: 048
     Dates: start: 20041228, end: 20080206
  4. DEXAMETHASONE TAB [Suspect]
     Indication: MULTIPLE MYELOMA
     Dosage: 12 MG, ORAL ; 40 MG, ORAL
     Route: 048
     Dates: end: 20080206
  5. VELCADE [Suspect]
     Indication: MULTIPLE MYELOMA
     Dosage: 0.8 MG/M2 ; 1 MG/M2
     Dates: end: 20080206
  6. VELCADE [Suspect]
     Indication: MULTIPLE MYELOMA
     Dosage: 0.8 MG/M2 ; 1 MG/M2
     Dates: start: 20041225
  7. MELPHALAN (MELPHALAN) [Suspect]
     Indication: MULTIPLE MYELOMA
     Dosage: 200 MG/M2 ; 200 MG/M2
     Dates: start: 20050302, end: 20050302
  8. MELPHALAN (MELPHALAN) [Suspect]
     Indication: MULTIPLE MYELOMA
     Dosage: 200 MG/M2 ; 200 MG/M2
     Dates: start: 20050514, end: 20050514
  9. CISPLATIN [Suspect]
     Indication: MULTIPLE MYELOMA
     Dosage: 7.5 MG/M2 ; 10 MG/M2
     Dates: end: 20051204
  10. CISPLATIN [Suspect]
     Indication: MULTIPLE MYELOMA
     Dosage: 7.5 MG/M2 ; 10 MG/M2
     Dates: start: 20041228
  11. ADRIAMYCIN PFS [Suspect]
     Indication: MULTIPLE MYELOMA
     Dosage: 7.5 MG/M2 ; 10 MG/M2
     Dates: end: 20051204
  12. ADRIAMYCIN PFS [Suspect]
     Indication: MULTIPLE MYELOMA
     Dosage: 7.5 MG/M2 ; 10 MG/M2
     Dates: start: 20041228
  13. CYCLOPHOSPHAMIDE [Concomitant]
     Indication: MULTIPLE MYELOMA
     Dosage: 300 MG/M2 ; 400 MG/M2
     Dates: end: 20051204
  14. CYCLOPHOSPHAMIDE [Concomitant]
     Indication: MULTIPLE MYELOMA
     Dosage: 300 MG/M2 ; 400 MG/M2
     Dates: start: 20041228
  15. ETOPOSIDE [Suspect]
     Indication: MULTIPLE MYELOMA
     Dosage: 30 MG/M2 ; 40 MG/M2
     Dates: end: 20051204
  16. ETOPOSIDE [Suspect]
     Indication: MULTIPLE MYELOMA
     Dosage: 30 MG/M2 ; 40 MG/M2
     Dates: start: 20041228
  17. PROSCAR (FINASTERIDE) (5 MILLIGRAM, TABLETS) [Concomitant]
  18. LIDODERM (LIDOCAINE) (5 PERCENT, POULTICE OR PATCH) [Concomitant]
  19. DOCUSATE SODIUM (DOCUSATE SODIUM) (100 MILLIGRAM, TABLETS) [Concomitant]
  20. AMBIEN CR (ZOLPIDEM TARTRATE) (TABLETS) [Concomitant]
  21. METHADONE HCL (METHADONE HYDROCHLORIDE) (5 MILLIGRAM, TABLETS) [Concomitant]
  22. CARDIZEM (DILTIAZEM HYDROCHLORIDE) (60 MILLIGRAM, TABLETS) [Concomitant]
  23. MORPHINE SULFATE (MORPHINE SULFATE) (15 MILLIGRAM, TABLETS) [Concomitant]
  24. KYRTIL (GRANISETRON) (1 MILLIGRAM, TABLETS) [Concomitant]
  25. HUMALOG [Concomitant]
  26. EFFEXOR XR (VENLAFAXINE HYDROCHLORIDE) (150 MILLIGRAM, CAPSULES) [Concomitant]
  27. REMERON (MIRTAZAPINE) (30 MILLIGRAM, TABLETS) [Concomitant]
  28. SUCRALFATE (SUCRALFATE) (1 GRAM, TABLETS) [Concomitant]
  29. POTASSIUM CHLORIDE (POTASSIUM CHLORIDE) (20 MILLIEQUIVALENTS, TABLETS) [Concomitant]
  30. FOLIC ACID (FOLIC ACID) (1 MILLIGRAM, TABLETS) [Concomitant]
  31. ADVAIR DISKUS (SERETIDE MITE) (AEROSOL FOR INHALATION) [Concomitant]
  32. PROMETHAZINE HCL (PROMETHAZINE HYDROCHLORIDE) (25 MILLIGRAM, TABLETS) [Concomitant]

REACTIONS (1)
  - PNEUMONIA [None]
